FAERS Safety Report 14639416 (Version 1)
Quarter: 2018Q1

REPORT INFORMATION
  Report Type: Spontaneous
  Country: FR (occurrence: FR)
  Receive Date: 20180315
  Receipt Date: 20180315
  Transmission Date: 20180509
  Serious: Yes (Other)
  Sender: FDA-Public Use
  Company Number: FR-MERCK KGAA-2043778

PATIENT
  Sex: Female

DRUGS (1)
  1. NOVOTHYROX [Suspect]
     Active Substance: LEVOTHYROXINE SODIUM
     Indication: PRODUCT USED FOR UNKNOWN INDICATION

REACTIONS (12)
  - Depression [None]
  - Mental fatigue [None]
  - Headache [Recovered/Resolved]
  - Pain [None]
  - Dizziness [None]
  - Social avoidant behaviour [None]
  - Disturbance in attention [None]
  - Fatigue [None]
  - Palpitations [None]
  - Appetite disorder [None]
  - Asthenia [None]
  - Muscle spasms [Recovered/Resolved]
